FAERS Safety Report 6018616-8 (Version None)
Quarter: 2008Q4

REPORT INFORMATION
  Report Type: 
  Country: None (occurrence: None)
  Receive Date: 20081223
  Receipt Date: 20081215
  Transmission Date: 20090506
  Serious: Yes (Hospitalization)
  Sender: FDA-Public Use
  Company Number: FR-ABBOTT-08P-056-0493048-00

PATIENT
  Sex: Male

DRUGS (16)
  1. KALETRA [Interacting]
     Indication: HIV INFECTION
     Route: 048
     Dates: start: 20080521, end: 20080530
  2. ISONIAZID W/PYRAZINAMIDE/RIFAMPICIN [Interacting]
     Indication: TUBERCULOSIS
     Route: 048
     Dates: start: 20080523
  3. ISONIAZID W/PYRAZINAMIDE/RIFAMPICIN [Interacting]
     Dates: start: 20080523
  4. TRUVADA [Suspect]
     Indication: HIV INFECTION
     Dosage: 200/245 MG
     Route: 048
     Dates: start: 20080521, end: 20080530
  5. LAMIVUDINE [Suspect]
     Indication: HIV INFECTION
     Route: 048
     Dates: start: 20080521
  6. EFAVIRENZ [Suspect]
     Indication: HIV INFECTION
     Route: 048
     Dates: start: 20080521
  7. SULFAMETHOXAZOLE AND TRIMETHOPRIM [Suspect]
     Indication: DRUG USE FOR UNKNOWN INDICATION
     Route: 048
     Dates: start: 20080521
  8. ETHAMBUTOL HYDROCHLORIDE [Suspect]
     Indication: TUBERCULOSIS
     Route: 048
     Dates: start: 20080523
  9. CEFTRIAXONE [Suspect]
     Indication: RHINORRHOEA
     Route: 048
     Dates: start: 20080506
  10. NAPROXEN [Suspect]
     Indication: RHINORRHOEA
     Route: 048
     Dates: start: 20080506
  11. ISONIAZID [Concomitant]
     Indication: DRUG USE FOR UNKNOWN INDICATION
     Route: 048
  12. RIFAMPICIN [Concomitant]
     Indication: DRUG USE FOR UNKNOWN INDICATION
     Route: 048
  13. BISOPROLOL FUMARATE [Concomitant]
     Indication: DRUG USE FOR UNKNOWN INDICATION
     Route: 048
  14. AMLODIPINE [Concomitant]
     Indication: DRUG USE FOR UNKNOWN INDICATION
     Route: 048
  15. PIPERACILLIN SODIUM AND TAZOBACTAM SODIUM [Concomitant]
     Indication: DRUG USE FOR UNKNOWN INDICATION
     Route: 048
  16. HYDROXYZINE [Concomitant]
     Indication: DRUG USE FOR UNKNOWN INDICATION
     Route: 048

REACTIONS (6)
  - DRUG INTERACTION [None]
  - HISTIOCYTOSIS HAEMATOPHAGIC [None]
  - HYPERTENSION [None]
  - IMMUNE RECONSTITUTION SYNDROME [None]
  - PROTEINURIA [None]
  - RENAL FAILURE ACUTE [None]
